FAERS Safety Report 8346131 (Version 2)
Quarter: 2013Q1

REPORT INFORMATION
  Report Type: Spontaneous
  Country: ZA (occurrence: ZA)
  Receive Date: 20120120
  Receipt Date: 20130104
  Transmission Date: 20140127
  Serious: Yes (Other)
  Sender: FDA-Public Use
  Company Number: PHHY2012ZA002904

PATIENT
  Age: 75 Year
  Sex: Female
  Weight: 125 kg

DRUGS (17)
  1. TAREG [Suspect]
     Indication: HYPERTENSION
     Dosage: 80 MG, NOCTE (EVERY NIGHT)
  2. DIAMICRON [Concomitant]
     Indication: DIABETES MELLITUS
     Dosage: 39 MG, QID
  3. ZILDEM [Concomitant]
     Indication: HYPERTENSION
     Dosage: 240 MG, MANE (EVERY MORNING)
  4. METHOTREXATE [Concomitant]
     Dosage: 2.5 MG ONCE/WEEK
  5. FOLIC ACID [Concomitant]
     Dosage: 5 MG, QD
  6. TRAMACET [Concomitant]
     Dosage: 2 T BD PRN
  7. CELEBREX [Concomitant]
     Dosage: 200 MG, QD PRN
  8. PANAFCORT [Concomitant]
     Dosage: 5 MG, EVERY MORNING (EVERY 2ND DAY)
  9. WARFARIN [Concomitant]
     Dosage: 5 MG, QD (ACC TO INR)
  10. ELTROXIN [Concomitant]
     Dosage: 0.1 MG, QD 5X/WEEK
  11. ELTROXIN [Concomitant]
     Dosage: 0.2 MG, 2X/WEEK
  12. BISOPROLOL FUMARATE [Concomitant]
     Dosage: 5 MG 1/2T, QD
  13. SPIRACTIN [Concomitant]
     Dosage: 25 MG, (2T MANE)
  14. GALVUS [Concomitant]
     Dosage: 50 MG, BID
  15. NEXIAM [Concomitant]
     Dosage: 20 MG, QD
  16. SIMVASTATIN [Concomitant]
     Dosage: 20 MG, EVERY NIGHT
  17. DIAMICRON MR [Concomitant]
     Dosage: 30 MG, (4T MANE)

REACTIONS (3)
  - Diabetes mellitus [Unknown]
  - Deep vein thrombosis [Unknown]
  - Hypercholesterolaemia [Unknown]
